FAERS Safety Report 9522826 (Version 1)
Quarter: 2013Q3

REPORT INFORMATION
  Report Type: Spontaneous
  Country: CN (occurrence: CN)
  Receive Date: 20130913
  Receipt Date: 20130913
  Transmission Date: 20140515
  Serious: Yes (Hospitalization, Other)
  Sender: FDA-Public Use
  Company Number: CN-ROCHE-1272983

PATIENT
  Age: 66 Year
  Sex: Male

DRUGS (1)
  1. LUCENTIS [Suspect]
     Indication: AGE-RELATED MACULAR DEGENERATION
     Route: 050

REACTIONS (5)
  - Blindness unilateral [Unknown]
  - Endophthalmitis [Unknown]
  - Retinal haemorrhage [Unknown]
  - Hypersensitivity [Unknown]
  - Circumstance or information capable of leading to medication error [Unknown]
